FAERS Safety Report 5127870-6 (Version None)
Quarter: 2006Q4

REPORT INFORMATION
  Report Type: 
  Country: None (occurrence: None)
  Receive Date: 20061010
  Receipt Date: 20060929
  Transmission Date: 20070319
  Serious: Yes (Other)
  Sender: FDA-Public Use
  Company Number: NLWYE110404OCT06

PATIENT
  Age: 65 Year
  Sex: Female

DRUGS (1)
  1. EFFEXOR XR [Suspect]
     Indication: DEPRESSION
     Dosage: 75 MG 1X PER 1 DAY; STARTED SEVERAL YEARS AGO

REACTIONS (2)
  - CEREBRAL INFARCTION [None]
  - DYSARTHRIA [None]
